FAERS Safety Report 4926475-7 (Version None)
Quarter: 2006Q1

REPORT INFORMATION
  Report Type: 
  Country: None (occurrence: None)
  Receive Date: 20060228
  Receipt Date: 20051202
  Transmission Date: 20060701
  Serious: No
  Sender: FDA-Public Use
  Company Number: US-GLAXOSMITHKLINE-A0584491A

PATIENT
  Age: 17 Year
  Sex: Female

DRUGS (2)
  1. LAMICTAL [Suspect]
     Indication: EPILEPSY
     Dosage: 200MG TWICE PER DAY
     Route: 048
  2. DILANTIN [Concomitant]
     Dosage: 200MG AT NIGHT
     Route: 048

REACTIONS (1)
  - DERMATITIS ACNEIFORM [None]
